FAERS Safety Report 20292059 (Version 1)
Quarter: 2022Q1

REPORT INFORMATION
  Report Type: Spontaneous
  Country: US (occurrence: US)
  Receive Date: 20220104
  Receipt Date: 20220104
  Transmission Date: 20220423
  Serious: Yes (Other)
  Sender: FDA-Public Use
  Company Number: US-Fresenius Kabi-FK202114808

PATIENT
  Age: 45 Year
  Sex: Female

DRUGS (5)
  1. HALOPERIDOL LACTATE [Suspect]
     Active Substance: HALOPERIDOL LACTATE
     Indication: Aggression
     Route: 030
  2. QUETIAPINE [Suspect]
     Active Substance: QUETIAPINE
     Indication: Mania
     Route: 065
  3. QUETIAPINE [Suspect]
     Active Substance: QUETIAPINE
     Route: 065
  4. CHLORPROMAZINE [Suspect]
     Active Substance: CHLORPROMAZINE
     Indication: Antipsychotic therapy
     Route: 030
  5. LORAZEPAM [Concomitant]
     Active Substance: LORAZEPAM
     Indication: Aggression
     Route: 065

REACTIONS (2)
  - Catatonia [Recovered/Resolved]
  - Neuroleptic malignant syndrome [Recovered/Resolved]
